FAERS Safety Report 8044148-1 (Version None)
Quarter: 2012Q1

REPORT INFORMATION
  Report Type: 
  Country: None (occurrence: None)
  Receive Date: 20120113
  Receipt Date: 20101223
  Transmission Date: 20120608
  Serious: Yes (Other)
  Sender: FDA-Public Use
  Company Number: IT-UCBSA-024732

PATIENT

DRUGS (9)
  1. LEVETIRACETAM [Suspect]
  2. ENTACAPONE [Concomitant]
     Indication: PARKINSON'S DISEASE
  3. CARBIDOPA [Concomitant]
     Indication: PARKINSON'S DISEASE
  4. LEVODOPA [Concomitant]
     Indication: PARKINSON'S DISEASE
     Dosage: DOSE RANGING FROM 350 TO 800 MG/DAY
  5. BENSERAZIDE [Concomitant]
     Indication: PARKINSON'S DISEASE
  6. LEVETIRACETAM [Suspect]
  7. PRAMIPEXOLE DIHYCHLLORIDE [Concomitant]
     Indication: PARKINSON'S DISEASE
  8. LEVETIRACETAM [Suspect]
     Indication: DYSKINESIA
     Dosage: 1 TAKEN IN THE EVENING
  9. LEVETIRACETAM [Suspect]

REACTIONS (1)
  - PARKINSON'S DISEASE [None]
